FAERS Safety Report 9734207 (Version 2)
Quarter: 2013Q4

REPORT INFORMATION
  Report Type: Report from Study
  Country: DE (occurrence: DE)
  Receive Date: 20131205
  Receipt Date: 20131205
  Transmission Date: 20140711
  Serious: Yes (Hospitalization)
  Sender: FDA-Public Use
  Company Number: DE-CELGENEUS-062-50794-13102095

PATIENT
  Age: 69 Year
  Sex: Male
  Weight: 94.8 kg

DRUGS (11)
  1. VIDAZA [Suspect]
     Indication: MYELODYSPLASTIC SYNDROME
     Route: 058
     Dates: start: 20130408, end: 20130505
  2. VIDAZA [Suspect]
     Route: 041
     Dates: start: 20130506
  3. VIDAZA [Suspect]
     Route: 065
     Dates: start: 201304
  4. ONDASETRON [Concomitant]
     Indication: PROPHYLAXIS
     Route: 048
     Dates: start: 20130405
  5. PANTOPRAZOL [Concomitant]
     Indication: PROPHYLAXIS
     Route: 048
     Dates: start: 20120224
  6. METOPROLOL [Concomitant]
     Indication: CORONARY ARTERY DISEASE
     Route: 048
  7. HYDROCHLOROTHIAZIDE [Concomitant]
     Indication: CORONARY ARTERY DISEASE
     Route: 048
  8. ENALAPRIL [Concomitant]
     Indication: CORONARY ARTERY DISEASE
     Route: 048
  9. ENALAPRIL [Concomitant]
     Indication: HYPERTENSION
  10. ALLOPURINOL [Concomitant]
     Indication: PROPHYLAXIS
     Route: 048
  11. CIPROFLOXACIN [Concomitant]
     Indication: PROPHYLAXIS
     Route: 048
     Dates: start: 20130919

REACTIONS (4)
  - Respiratory failure [Unknown]
  - Pneumonia [Unknown]
  - Pulmonary embolism [Unknown]
  - Thrombocytosis [Unknown]
